FAERS Safety Report 16824776 (Version 2)
Quarter: 2020Q2

REPORT INFORMATION
  Report Type: Other
  Country: GB (occurrence: GB)
  Receive Date: 20190918
  Receipt Date: 20200407
  Transmission Date: 20200713
  Serious: Yes (Hospitalization)
  Sender: FDA-Public Use
  Company Number: GB-CELLTRION INC.-2019GB024685

PATIENT

DRUGS (34)
  1. TRASTUZUMAB (UNKNOWN) [Suspect]
     Active Substance: TRASTUZUMAB
     Dosage: 600 MG, 3/WEEK
     Route: 058
     Dates: start: 20161013, end: 20180130
  2. PACLITAXEL. [Suspect]
     Active Substance: PACLITAXEL
     Dosage: 162 MG, UNK
     Route: 042
     Dates: start: 20180921, end: 20181025
  3. OMEPRAZOLE. [Concomitant]
     Active Substance: OMEPRAZOLE
     Indication: PROPHYLAXIS
     Dosage: 40 MG, DAILY
     Route: 048
     Dates: start: 20160902
  4. EXEMESTANE. [Suspect]
     Active Substance: EXEMESTANE
     Dosage: 25 MG, DAILY
     Route: 048
     Dates: start: 20161122
  5. TRASTUZUMAB (UNKNOWN) [Suspect]
     Active Substance: TRASTUZUMAB
     Dosage: 600 MG, 3/WEEK
     Route: 058
     Dates: start: 20180718
  6. PACLITAXEL. [Suspect]
     Active Substance: PACLITAXEL
     Dosage: 120 MG, UNK
     Route: 042
     Dates: start: 20181108, end: 20190228
  7. MACROGOL COMP [Concomitant]
     Indication: PRODUCT USED FOR UNKNOWN INDICATION
     Dosage: 2 DF, DAILY
     Route: 048
     Dates: start: 20160913
  8. OMEPRAZOLE. [Concomitant]
     Active Substance: OMEPRAZOLE
     Dosage: 40 MG, DAILY, 0.5/DAY
     Route: 048
     Dates: start: 20160902
  9. LANSOPRAZOLE. [Concomitant]
     Active Substance: LANSOPRAZOLE
     Indication: PROPHYLAXIS
     Dosage: 30 MG, DAILY
     Route: 048
     Dates: start: 20181106
  10. DOMPERIDONE [Concomitant]
     Active Substance: DOMPERIDONE
     Indication: NAUSEA
     Dosage: 10 MG, 0.33/DAY
     Route: 048
     Dates: start: 20181108
  11. DEXAMETHASONE. [Concomitant]
     Active Substance: DEXAMETHASONE
     Indication: NAUSEA
     Dosage: 4 MG, QD
     Route: 048
     Dates: start: 20181102
  12. GABAPENTIN. [Concomitant]
     Active Substance: GABAPENTIN
     Indication: PRODUCT USED FOR UNKNOWN INDICATION
     Dosage: 900 MG, DAILY
     Route: 048
     Dates: start: 20160913
  13. GABAPENTIN. [Concomitant]
     Active Substance: GABAPENTIN
     Dosage: 300 MG, 0.33/DAY
     Route: 048
     Dates: start: 20160913
  14. CAPECITABINE. [Suspect]
     Active Substance: CAPECITABINE
     Dosage: 500 MG, UNK
     Route: 048
     Dates: start: 20180227, end: 20180731
  15. MACROGOL COMP [Concomitant]
     Dosage: 2 DF, 0.5/DAY
     Route: 048
     Dates: start: 20160913
  16. DEXAMETHASONE. [Concomitant]
     Active Substance: DEXAMETHASONE
     Indication: SPINAL PAIN
     Dosage: 4 UNK, DAILY
     Route: 048
     Dates: start: 20181102, end: 20181108
  17. PARACETAMOL [Concomitant]
     Active Substance: ACETAMINOPHEN
     Indication: PRODUCT USED FOR UNKNOWN INDICATION
     Dosage: 4 G, DAILY, 0.25/DAY
     Route: 048
     Dates: start: 20160913
  18. GLYCEROL [Concomitant]
     Active Substance: GLYCERIN
     Indication: CONSTIPATION
     Dosage: 4 G
     Route: 054
     Dates: start: 20181029, end: 20181030
  19. MORPHINE SULPHATE [Concomitant]
     Active Substance: MORPHINE SULFATE
     Indication: SPINAL PAIN
     Dosage: 30 MG, DAILY
     Route: 048
     Dates: start: 20181102
  20. AROMASIN [Suspect]
     Active Substance: EXEMESTANE
     Dosage: 25 MG, QD
     Route: 048
     Dates: start: 20161122
  21. NERATINIB [Suspect]
     Active Substance: NERATINIB
     Dosage: 240 MG DAILY
     Route: 048
     Dates: start: 20190226, end: 20190227
  22. METOCLOPRAMIDE. [Concomitant]
     Active Substance: METOCLOPRAMIDE
     Indication: NAUSEA
     Dosage: 10 MG, 0.33/DAY
     Route: 048
     Dates: start: 20190124
  23. ZOLEDRONIC ACID [Concomitant]
     Active Substance: ZOLEDRONIC ACID
     Indication: BONE PAIN
  24. LIDOCAINE. [Concomitant]
     Active Substance: LIDOCAINE
     Indication: BACK PAIN
     Dosage: 700 MG
     Route: 061
     Dates: start: 20181108
  25. HALOPERIDOL. [Concomitant]
     Active Substance: HALOPERIDOL
     Indication: SPINAL PAIN
     Dosage: 3 MG, DAILY
     Route: 048
     Dates: start: 20181102, end: 20181108
  26. HALOPERIDOL. [Concomitant]
     Active Substance: HALOPERIDOL
     Dosage: 1.5 MG, 0.5/DAY
     Route: 048
     Dates: start: 20181102, end: 20181108
  27. MORPHINE SULPHATE [Concomitant]
     Active Substance: MORPHINE SULFATE
     Dosage: 5 MG, PRN
     Route: 048
     Dates: start: 20160913
  28. ZOLEDRONIC ACID [Concomitant]
     Active Substance: ZOLEDRONIC ACID
     Indication: METASTASES TO BONE
     Dosage: 3.5 MG, MONTHLY
     Route: 042
     Dates: start: 20160920
  29. NAPROXEN SODIUM. [Concomitant]
     Active Substance: NAPROXEN SODIUM
     Indication: PRODUCT USED FOR UNKNOWN INDICATION
     Dosage: 500 MG, DAILY
     Route: 048
     Dates: start: 20160902
  30. LEVOTHYROXINE. [Concomitant]
     Active Substance: LEVOTHYROXINE
     Indication: PRODUCT USED FOR UNKNOWN INDICATION
     Dosage: 175 MG, DAILY
     Route: 048
     Dates: start: 20030924
  31. MORPHINE SULPHATE [Concomitant]
     Active Substance: MORPHINE SULFATE
     Dosage: 15 MG, 0.5/DAY
     Route: 048
     Dates: start: 20181102
  32. CALCICHEW-D3 FORTE [Concomitant]
     Active Substance: CALCIUM\CHOLECALCIFEROL
     Indication: PRODUCT USED FOR UNKNOWN INDICATION
     Dosage: 2 DF, DAILY
     Route: 048
     Dates: start: 20160917
  33. DOCUSATE SODIUM. [Concomitant]
     Active Substance: DOCUSATE SODIUM
     Indication: CONSTIPATION
     Dosage: 400 MG, DAILY
     Route: 048
     Dates: start: 20181102
  34. DOCUSATE SODIUM. [Concomitant]
     Active Substance: DOCUSATE SODIUM
     Dosage: 200 MG, 0.5/DAY
     Route: 048
     Dates: start: 20181102

REACTIONS (7)
  - Vomiting [Recovered/Resolved]
  - Blood phosphorus decreased [Recovered/Resolved]
  - Diarrhoea [Recovered/Resolved]
  - Decreased appetite [Recovered/Resolved]
  - Nausea [Not Recovered/Not Resolved]
  - Diarrhoea [Recovered/Resolved]
  - Product use issue [Unknown]

NARRATIVE: CASE EVENT DATE: 201803
